FAERS Safety Report 25389119 (Version 1)
Quarter: 2025Q2

REPORT INFORMATION
  Report Type: Spontaneous
  Country: US (occurrence: US)
  Receive Date: 20250603
  Receipt Date: 20250603
  Transmission Date: 20250716
  Serious: No
  Sender: ALKEM
  Company Number: US-ALKEM LABORATORIES LIMITED-US-ALKEM-2025-04652

PATIENT

DRUGS (3)
  1. OLMESARTAN [Suspect]
     Active Substance: OLMESARTAN
     Indication: Product used for unknown indication
     Route: 065
  2. OLMESARTAN [Suspect]
     Active Substance: OLMESARTAN
     Route: 065
     Dates: start: 20250314
  3. OLMESARTAN [Suspect]
     Active Substance: OLMESARTAN
     Route: 065
     Dates: start: 20250314

REACTIONS (3)
  - Drug ineffective [Recovered/Resolved]
  - Product substitution issue [Unknown]
  - Therapeutic response decreased [Unknown]
